FAERS Safety Report 9270578 (Version 4)
Quarter: 2013Q4

REPORT INFORMATION
  Report Type: Report from Study
  Country: BE (occurrence: BE)
  Receive Date: 20130503
  Receipt Date: 20131024
  Transmission Date: 20140711
  Serious: Yes (Hospitalization, Other)
  Sender: FDA-Public Use
  Company Number: BE-PFIZER INC-2013131391

PATIENT
  Age: 57 Year
  Sex: 0
  Weight: 66 kg

DRUGS (8)
  1. SOLU-MEDROL [Suspect]
     Indication: PRODUCT USED FOR UNKNOWN INDICATION
     Dosage: 80 MG, SINGLE
     Dates: start: 20130414, end: 20130414
  2. SOLU-MEDROL [Suspect]
     Dosage: 40 MG
     Dates: start: 20130415, end: 20130419
  3. TRASTUZUMAB [Suspect]
     Indication: BREAST CANCER
     Dosage: 237.6 MG, ONCE EVERY THREE WEEKS
     Route: 042
     Dates: start: 20130412
  4. FORLAX [Concomitant]
     Dosage: 1 SACHET
  5. POLYETHYLENE GLYCOL [Concomitant]
  6. LAXOBERON [Concomitant]
     Dosage: 10 DROP, UNK
     Dates: start: 20121201
  7. PANTOMED [Concomitant]
     Dosage: 40 MG, UNK
     Dates: start: 20121201
  8. SOMATULINE [Concomitant]
     Dosage: 30 MG, UNK
     Dates: start: 20120927

REACTIONS (1)
  - Intestinal obstruction [Recovered/Resolved]
